FAERS Safety Report 10278651 (Version 2)
Quarter: 2014Q3

REPORT INFORMATION
  Report Type: Spontaneous
  Country: BR (occurrence: BR)
  Receive Date: 20140704
  Receipt Date: 20140726
  Transmission Date: 20150326
  Serious: Yes (Hospitalization)
  Sender: FDA-Public Use
  Company Number: BR-ABBVIE-14P-020-1254482-00

PATIENT
  Age: 60 Year
  Sex: Female

DRUGS (2)
  1. CORTICOIDEX [Concomitant]
     Indication: RHEUMATOID ARTHRITIS
     Dosage: LOW DOSAGE
  2. HUMIRA [Suspect]
     Active Substance: ADALIMUMAB
     Indication: RHEUMATOID ARTHRITIS

REACTIONS (2)
  - Interstitial lung disease [Recovered/Resolved]
  - Pulmonary oedema [Unknown]
